FAERS Safety Report 7994542-X (Version None)
Quarter: 2011Q4

REPORT INFORMATION
  Report Type: 
  Country: None (occurrence: None)
  Receive Date: 20111220
  Receipt Date: 20111208
  Transmission Date: 20120403
  Serious: Yes (Hospitalization)
  Sender: FDA-Public Use
  Company Number: DE-SANOFI-AVENTIS-2011SA076834

PATIENT
  Age: 60 Year
  Sex: Female
  Weight: 85 kg

DRUGS (4)
  1. CAPECITABINE [Suspect]
     Indication: RECTAL CANCER
     Dosage: 1000 MG/M2 ON DAY 1 AND DAY 15
     Route: 048
     Dates: start: 20110607, end: 20111107
  2. THERAPEUTIC RADIOPHARMACEUTICALS [Suspect]
     Indication: RECTAL CANCER
     Dosage: TOTAL DOSE RECEIVED: 50.4GYTOTAL DOSE 1.8 GY ON 15 JULY 2011NUMBER OF FRACTIONS 28
     Route: 065
     Dates: start: 20110607, end: 20110715
  3. OXALIPLATIN [Suspect]
     Indication: RECTAL CANCER
     Dosage: 130 MG/M2 ON DAY 1
     Route: 042
     Dates: start: 20110607, end: 20111114
  4. LEVOTHYROXINE SODIUM [Concomitant]
     Indication: HYPOTHYROIDISM
     Route: 048
     Dates: start: 19800101

REACTIONS (5)
  - VOMITING [None]
  - DIARRHOEA [None]
  - CYTOKINE RELEASE SYNDROME [None]
  - CHILLS [None]
  - PYREXIA [None]
